FAERS Safety Report 17432501 (Version 1)
Quarter: 2020Q1

REPORT INFORMATION
  Report Type: Spontaneous
  Country: FR (occurrence: FR)
  Receive Date: 20200218
  Receipt Date: 20200218
  Transmission Date: 20200409
  Serious: Yes (Hospitalization)
  Sender: FDA-Public Use
  Company Number: FR-TEVA-2020-FR-1186835

PATIENT
  Age: 21 Year
  Sex: Female
  Weight: 90 kg

DRUGS (7)
  1. PROVAMES [Concomitant]
     Active Substance: ESTRADIOL
  2. CABERGOLINE. [Suspect]
     Active Substance: CABERGOLINE
     Indication: HYPERPROLACTINAEMIA
     Dosage: 1 MILLIGRAM
     Route: 048
     Dates: start: 201603
  3. GINKOR FORT, G?LULE [Concomitant]
     Active Substance: GINKGO\HEPTAMINOL\TROXERUTIN
  4. LUTENYL [Concomitant]
     Active Substance: NOMEGESTROL ACETATE
  5. RESITUNE 100 MG, COMPRIM? GASTRO-R?SISTANT [Concomitant]
  6. COMPLEMENT ALIMENTAIRE [Concomitant]
     Active Substance: DIETARY SUPPLEMENT
  7. OXYCONTIN [Concomitant]
     Active Substance: OXYCODONE HYDROCHLORIDE

REACTIONS (1)
  - Osteonecrosis [Recovered/Resolved]

NARRATIVE: CASE EVENT DATE: 2018
